FAERS Safety Report 14984202 (Version 4)
Quarter: 2019Q3

REPORT INFORMATION
  Report Type: Report from Study
  Country: FR (occurrence: FR)
  Receive Date: 20180607
  Receipt Date: 20190709
  Transmission Date: 20191004
  Serious: Yes (Death, Other)
  Sender: FDA-Public Use
  Company Number: FR-JAZZ-2017-FR-015309

PATIENT

DRUGS (10)
  1. MYCAMINE [Concomitant]
     Active Substance: MICAFUNGIN SODIUM
     Indication: INFECTION PROPHYLAXIS
     Dosage: 50 MG, UNK
     Route: 042
     Dates: start: 20150319, end: 20150413
  2. LEUKOTAC [Concomitant]
     Active Substance: INOLIMOMAB
     Indication: GRAFT VERSUS HOST DISEASE
     Dosage: 28 MG, QD
     Route: 042
     Dates: start: 20150402, end: 20150413
  3. TAZOBACTAM [Concomitant]
     Active Substance: TAZOBACTAM
     Indication: INFECTION PROPHYLAXIS
     Dosage: 500 MG, QD
     Route: 042
     Dates: start: 20150327, end: 20150416
  4. DEFITELIO [Suspect]
     Active Substance: DEFIBROTIDE SODIUM
     Indication: PROPHYLAXIS
     Dosage: 24 MG/KG/DAY
     Route: 042
     Dates: start: 20150212, end: 20150310
  5. ZOVIRAX CSC [Concomitant]
     Active Substance: ACYCLOVIR
     Indication: PROPHYLAXIS
     Dosage: 250 MG, QD
     Route: 048
     Dates: start: 20150319, end: 20150409
  6. ESOMEPRAZOLE. [Concomitant]
     Active Substance: ESOMEPRAZOLE MAGNESIUM
     Indication: PROPHYLAXIS
     Dosage: 40 MG, QD
     Route: 042
     Dates: start: 20150319, end: 20150413
  7. METHYLPREDNISOLONE. [Concomitant]
     Active Substance: METHYLPREDNISOLONE
     Indication: GRAFT VERSUS HOST DISEASE
     Dosage: UNK
     Route: 042
     Dates: start: 20150320, end: 20150410
  8. IMIPENEM [Concomitant]
     Active Substance: IMIPENEM
     Indication: INFECTION PROPHYLAXIS
     Dosage: 500 MG, UNK
     Route: 042
     Dates: start: 20150404, end: 20150409
  9. CILASTATIN [Concomitant]
     Active Substance: CILASTATIN
     Indication: INFECTION PROPHYLAXIS
     Dosage: 500 MG, UNK
     Route: 042
     Dates: start: 20150404, end: 20150409
  10. PIPERACILLIN. [Concomitant]
     Active Substance: PIPERACILLIN SODIUM
     Indication: INFECTION PROPHYLAXIS
     Dosage: 4 G, QD
     Route: 042
     Dates: start: 20150327, end: 20150416

REACTIONS (4)
  - Hypotension [Recovered/Resolved]
  - Death [Fatal]
  - Off label use [Unknown]
  - Sepsis [Unknown]

NARRATIVE: CASE EVENT DATE: 20150212
